FAERS Safety Report 24753111 (Version 1)
Quarter: 2024Q4

REPORT INFORMATION
  Report Type: Report from Study
  Country: TN (occurrence: TN)
  Receive Date: 20241219
  Receipt Date: 20241219
  Transmission Date: 20250114
  Serious: Yes (Other)
  Sender: ABBVIE
  Company Number: TN-ABBVIE-6048063

PATIENT
  Age: 48 Year
  Sex: Female

DRUGS (6)
  1. HUMIRA [Suspect]
     Active Substance: ADALIMUMAB
     Indication: Crohn^s disease
     Dosage: FORM STRENGTH: 40 MILLIGRAM
     Route: 058
     Dates: start: 20180410, end: 20180410
  2. HUMIRA [Suspect]
     Active Substance: ADALIMUMAB
     Dosage: FORM STRENGTH: 40 MILLIGRAM
     Route: 058
     Dates: start: 202410
  3. HUMIRA [Suspect]
     Active Substance: ADALIMUMAB
     Dosage: FORM STRENGTH: 40 MILLIGRAM
     Route: 058
     Dates: start: 20200424, end: 202409
  4. HUMIRA [Suspect]
     Active Substance: ADALIMUMAB
     Dosage: STOP DATE TEXT: BETWEEN MARCH AND APRIL 2020?FORM STRENGTH: 40 MILLIGRAM
     Route: 058
     Dates: start: 20180508
  5. HUMIRA [Suspect]
     Active Substance: ADALIMUMAB
     Dosage: FORM STRENGTH: 40 MILLIGRAM
     Route: 058
     Dates: start: 20180424, end: 20180424
  6. METFORMIN HYDROCHLORIDE [Concomitant]
     Active Substance: METFORMIN HYDROCHLORIDE
     Indication: Diabetes mellitus
     Dosage: 2 TABLET?FORM STRENGTH: 850 MILLIGRAM?START DATE TEXT: 5 YEARS AGO
     Route: 048

REACTIONS (5)
  - Arterial thrombosis [Recovered/Resolved]
  - Gastrointestinal disorder [Recovered/Resolved]
  - Heart rate abnormal [Recovered/Resolved]
  - Iron deficiency anaemia [Unknown]
  - Drug level decreased [Unknown]

NARRATIVE: CASE EVENT DATE: 20220401
